FAERS Safety Report 17864568 (Version 1)
Quarter: 2020Q2

REPORT INFORMATION
  Report Type: Spontaneous
  Country: US (occurrence: US)
  Receive Date: 20200605
  Receipt Date: 20200605
  Transmission Date: 20200714
  Serious: Yes (Other)
  Sender: FDA-Public Use
  Company Number: None

PATIENT
  Age: 42 Year
  Sex: Female
  Weight: 126 kg

DRUGS (8)
  1. PREDNISOLONE ACETATE. [Concomitant]
     Active Substance: PREDNISOLONE ACETATE
  2. VITAMIN C [Concomitant]
     Active Substance: ASCORBIC ACID
  3. FISH OIL [Concomitant]
     Active Substance: FISH OIL
  4. BIOTIN [Concomitant]
     Active Substance: BIOTIN
  5. HYDROCHLOROTHIAZIDE. [Concomitant]
     Active Substance: HYDROCHLOROTHIAZIDE
  6. VITAMIN D [Concomitant]
     Active Substance: VITAMIN D NOS
  7. NP THYROID [Suspect]
     Active Substance: LEVOTHYROXINE\LIOTHYRONINE
     Indication: HYPOTHYROIDISM
     Dosage: ?          QUANTITY:70 TABLET(S);?
     Route: 048
  8. WOMAN^S MULTI VITAMIN W/IRON [Concomitant]

REACTIONS (3)
  - Hypertension [None]
  - Chest pain [None]
  - Heart rate increased [None]

NARRATIVE: CASE EVENT DATE: 20190518
